FAERS Safety Report 19743883 (Version 1)
Quarter: 2021Q3

REPORT INFORMATION
  Report Type: Spontaneous
  Country: JP (occurrence: JP)
  Receive Date: 20210824
  Receipt Date: 20210824
  Transmission Date: 20211014
  Serious: Yes (Other)
  Sender: FDA-Public Use
  Company Number: JP-SETONPHARMA-2021SETLIT00018

PATIENT
  Age: 53 Year
  Sex: Male

DRUGS (5)
  1. CICLOSPORIN [Suspect]
     Active Substance: CYCLOSPORINE
     Indication: PEMPHIGUS
     Dosage: FOR 11 YEARS
     Route: 048
  2. PREDNISOLONE. [Suspect]
     Active Substance: PREDNISOLONE
     Indication: PEMPHIGUS
     Route: 048
  3. PREDNISOLONE. [Suspect]
     Active Substance: PREDNISOLONE
     Route: 048
  4. METHYLPREDNISOLONE. [Suspect]
     Active Substance: METHYLPREDNISOLONE
     Indication: PEMPHIGUS
     Dosage: 1000 MG/DAY FOR THREE CONSECUTIVE DAYS EACH TIME
     Route: 065
  5. PETROLATUM. [Interacting]
     Active Substance: PETROLATUM
     Indication: SEBORRHOEIC KERATOSIS
     Route: 061

REACTIONS (11)
  - Skin exfoliation [Not Recovered/Not Resolved]
  - Acantholysis [Not Recovered/Not Resolved]
  - Dermatitis bullous [Not Recovered/Not Resolved]
  - Rash [Not Recovered/Not Resolved]
  - Pemphigus [Not Recovered/Not Resolved]
  - Drug resistance [Not Recovered/Not Resolved]
  - Erythema [Not Recovered/Not Resolved]
  - Skin hyperplasia [Not Recovered/Not Resolved]
  - Steroid diabetes [Unknown]
  - Seborrhoeic keratosis [Not Recovered/Not Resolved]
  - Skin lesion [Not Recovered/Not Resolved]
